FAERS Safety Report 18279302 (Version 2)
Quarter: 2020Q3

REPORT INFORMATION
  Report Type: Spontaneous
  Country: AU (occurrence: AU)
  Receive Date: 20200917
  Receipt Date: 20200917
  Transmission Date: 20201103
  Serious: Yes (Other)
  Sender: FDA-Public Use
  Company Number: AU-CIPLA LTD.-2020AU06517

PATIENT

DRUGS (5)
  1. LAMOTRIGINE. [Interacting]
     Active Substance: LAMOTRIGINE
     Dosage: 400 MG IN THE MORNING AND 600 MG IN THE NIGHT, BID
     Route: 048
  2. LAMOTRIGINE. [Suspect]
     Active Substance: LAMOTRIGINE
     Indication: EPILEPSY
     Dosage: 25 MG, SECOND DAILY
     Route: 048
  3. LAMOTRIGINE. [Interacting]
     Active Substance: LAMOTRIGINE
     Dosage: 25 MG, WEEKLY
     Route: 048
  4. LAMOTRIGINE. [Interacting]
     Active Substance: LAMOTRIGINE
     Dosage: 300 MG IN THE MORNING AND 400 MG IN THE NIGHT, BID
     Route: 048
  5. LEVETIRACETAM. [Concomitant]
     Active Substance: LEVETIRACETAM
     Indication: EPILEPSY
     Dosage: 1 G IN THE MORNING AND 2 G AT NIGHT, BID
     Route: 065

REACTIONS (8)
  - Drug interaction [Unknown]
  - Wrong product administered [Unknown]
  - Impaired driving ability [Recovered/Resolved]
  - Disease recurrence [Unknown]
  - Anticonvulsant drug level below therapeutic [Recovered/Resolved]
  - Product prescribing error [Unknown]
  - Seizure [Recovered/Resolved]
  - Loss of personal independence in daily activities [Recovered/Resolved]
